FAERS Safety Report 20846257 (Version 2)
Quarter: 2022Q3

REPORT INFORMATION
  Report Type: Spontaneous
  Country: US (occurrence: US)
  Receive Date: 20220518
  Receipt Date: 20220713
  Transmission Date: 20221027
  Serious: No
  Sender: FDA-Public Use
  Company Number: US-KARYOPHARM-2022KPT000556

PATIENT

DRUGS (7)
  1. XPOVIO [Suspect]
     Active Substance: SELINEXOR
     Indication: Hepatic neoplasm
     Dosage: 60 MG, 2X/WEEK
     Route: 048
     Dates: start: 202205, end: 202206
  2. XPOVIO [Suspect]
     Active Substance: SELINEXOR
     Indication: Cholangiocarcinoma
  3. ATORVASTATIN [Concomitant]
     Active Substance: ATORVASTATIN
  4. ELIQUIS [Concomitant]
     Active Substance: APIXABAN
  5. FOLIC ACID [Concomitant]
     Active Substance: FOLIC ACID
  6. OXYCODONE [Concomitant]
     Active Substance: OXYCODONE
  7. SERTRALINE [Concomitant]
     Active Substance: SERTRALINE HYDROCHLORIDE

REACTIONS (2)
  - Metastases to liver [Unknown]
  - Off label use [Unknown]

NARRATIVE: CASE EVENT DATE: 20220501
